FAERS Safety Report 16347540 (Version 1)
Quarter: 2019Q3

REPORT INFORMATION
  Report Type: Spontaneous
  Country: US (occurrence: US)
  Receive Date: 20190522
  Receipt Date: 20190522
  Transmission Date: 20191004
  Serious: Yes (Hospitalization, Disabling)
  Sender: FDA-Public Use
  Company Number: None

PATIENT
  Age: 83 Year
  Sex: Female
  Weight: 85.95 kg

DRUGS (14)
  1. LASIX [Concomitant]
     Active Substance: FUROSEMIDE
  2. VITAMIN D [Concomitant]
     Active Substance: VITAMIN D NOS
  3. FISH OIL [Concomitant]
     Active Substance: FISH OIL
  4. MULTIVITAMIN [Concomitant]
     Active Substance: VITAMINS
  5. PROTONIX [Concomitant]
     Active Substance: PANTOPRAZOLE SODIUM
  6. PRVASTATIN (PRAVACHOL) [Concomitant]
  7. OMEGA-3 ACIDS [Concomitant]
     Active Substance: OMEGA-3 FATTY ACIDS
  8. NEURONTIN [Concomitant]
     Active Substance: GABAPENTIN
  9. METOPROLOL SUCCINATE (TOPROL XL) [Concomitant]
  10. ASPRIN [Concomitant]
     Active Substance: ASPIRIN
  11. METFORMIN (GLUCOPHAGE) [Concomitant]
  12. CALCIUM [Concomitant]
     Active Substance: CALCIUM
  13. AMLODIPINE-BENAZEPRIL 10-20 MG [Suspect]
     Active Substance: AMLODIPINE BESYLATE\BENAZEPRIL HYDROCHLORIDE
     Indication: BLOOD PRESSURE MEASUREMENT
     Dosage: ?          QUANTITY:1 CAPSULE(S);?
     Route: 048
     Dates: start: 20190411, end: 20190419
  14. PLAVIX [Concomitant]
     Active Substance: CLOPIDOGREL BISULFATE

REACTIONS (3)
  - Peripheral swelling [None]
  - Arthralgia [None]
  - Product substitution issue [None]

NARRATIVE: CASE EVENT DATE: 20190417
